FAERS Safety Report 6076418-0 (Version None)
Quarter: 2009Q1

REPORT INFORMATION
  Report Type: 
  Country: None (occurrence: None)
  Receive Date: 20090211
  Receipt Date: 20090211
  Transmission Date: 20090719
  Serious: Yes (Life-Threatening, Hospitalization)
  Sender: FDA-Public Use
  Company Number: None

PATIENT
  Age: 45 Year
  Sex: Female
  Weight: 63.5036 kg

DRUGS (2)
  1. GAMUNEX [Suspect]
     Indication: HYPOGAMMAGLOBULINAEMIA
     Dosage: 50 GMS/MONTH MONTHLY IV DRIP
     Route: 041
     Dates: start: 20070401, end: 20090209
  2. NUVARING [Suspect]
     Indication: MENSTRUAL DISORDER
     Dosage: CONTINUOUSLY VAG
     Route: 067
     Dates: start: 20061101, end: 20081127

REACTIONS (1)
  - PULMONARY EMBOLISM [None]
